FAERS Safety Report 8157224-X (Version None)
Quarter: 2012Q1

REPORT INFORMATION
  Report Type: 
  Country: None (occurrence: None)
  Receive Date: 20120222
  Receipt Date: 20120222
  Transmission Date: 20120608
  Serious: Yes (Other)
  Sender: FDA-Public Use
  Company Number: None

PATIENT
  Age: 39 Year
  Sex: Female
  Weight: 56.699 kg

DRUGS (1)
  1. LEXAPRO [Suspect]

REACTIONS (10)
  - ANORGASMIA [None]
  - EMOTIONAL DISORDER [None]
  - LIBIDO DECREASED [None]
  - PREGNANCY [None]
  - MATERNAL EXPOSURE BEFORE PREGNANCY [None]
  - ANHEDONIA [None]
  - PERSONALITY CHANGE [None]
  - HYPOAESTHESIA [None]
  - SEXUAL DYSFUNCTION [None]
  - DEPERSONALISATION [None]
